FAERS Safety Report 21137197 (Version 1)
Quarter: 2022Q3

REPORT INFORMATION
  Report Type: Spontaneous
  Country: US (occurrence: US)
  Receive Date: 20220727
  Receipt Date: 20220727
  Transmission Date: 20221027
  Serious: Yes (Life-Threatening, Hospitalization, Other)
  Sender: FDA-Public Use
  Company Number: US-PFIZER INC-PV202200024774

PATIENT
  Age: 57 Year
  Sex: Male

DRUGS (2)
  1. BEVACIZUMAB [Suspect]
     Active Substance: BEVACIZUMAB
     Indication: Colorectal cancer
     Dosage: UNK (FOR 5 MONTHS AFTER COMPLETION OF 11 CYCLES OF FOLFOX)
  2. FLUOROURACIL\IRINOTECAN\LEUCOVORIN [Concomitant]
     Active Substance: FLUOROURACIL\IRINOTECAN\LEUCOVORIN
     Indication: Colorectal cancer
     Dosage: UNK (FOR 5 MONTHS AFTER COMPLETION OF 11 CYCLES OF FOLFOX)

REACTIONS (3)
  - Pneumothorax [Unknown]
  - Interstitial lung disease [Unknown]
  - Respiratory failure [Unknown]
